FAERS Safety Report 25164236 (Version 1)
Quarter: 2025Q2

REPORT INFORMATION
  Report Type: Spontaneous
  Country: ES (occurrence: ES)
  Receive Date: 20250405
  Receipt Date: 20250405
  Transmission Date: 20250716
  Serious: Yes (Hospitalization, Other)
  Sender: AMGEN
  Company Number: ES-AMGEN-ESPSP2025063000

PATIENT
  Age: 23 Year
  Sex: Male

DRUGS (1)
  1. ADALIMUMAB [Suspect]
     Active Substance: ADALIMUMAB
     Indication: Ankylosing spondylitis
     Route: 065

REACTIONS (13)
  - COVID-19 [Unknown]
  - Myopericarditis [Unknown]
  - Pericardial effusion [Unknown]
  - Vascular pseudoaneurysm ruptured [Unknown]
  - Behcet^s syndrome [Unknown]
  - Pericarditis [Unknown]
  - Aortic pseudoaneurysm [Unknown]
  - Cardiac ventricular thrombosis [Unknown]
  - Gastrointestinal haemorrhage [Unknown]
  - Ischaemic stroke [Unknown]
  - Haemorrhagic transformation stroke [Unknown]
  - Vascular pseudoaneurysm [Unknown]
  - Peripheral artery thrombosis [Unknown]
